FAERS Safety Report 8907794 (Version 1)
Quarter: 2012Q4

REPORT INFORMATION
  Report Type: 
  Country: US (occurrence: US)
  Receive Date: 20121113
  Receipt Date: 20121113
  Transmission Date: 20130627
  Serious: No
  Sender: FDA-Public Use
  Company Number: US-AMGEN-USASP2012039507

PATIENT

DRUGS (18)
  1. ENBREL [Suspect]
     Indication: PRODUCT USED FOR UNKNOWN INDICATION
     Dosage: 50 mg, qwk
     Route: 058
  2. MINOCIN [Concomitant]
     Dosage: 10 mg, UNK
  3. COREG [Concomitant]
     Dosage: 25 mg, UNK
  4. PLAQUENIL                          /00072603/ [Concomitant]
     Dosage: 200 mg, UNK
  5. LASIX                              /00032601/ [Concomitant]
     Dosage: 20 mg, UNK
  6. ULTRAM [Concomitant]
     Dosage: 50 mg, UNK
  7. PREDNISONE [Concomitant]
     Dosage: 10 mg, UNK
  8. VICODIN [Concomitant]
     Dosage: 5-500 mg
  9. DIOVAN HCT [Concomitant]
     Dosage: 80/12.5
  10. FOLIC ACID [Concomitant]
     Dosage: 1 mg, UNK
  11. VITAMIN C                          /00008001/ [Concomitant]
     Dosage: 500 mg, UNK
  12. MAGNESIUM [Concomitant]
     Dosage: 250 mg, UNK
  13. POTASSIUM [Concomitant]
     Dosage: 99 mg, UNK
  14. FLAXSEED OIL [Concomitant]
     Dosage: 500 mg, UNK
  15. VITAMIN D /00107901/ [Concomitant]
     Dosage: 1000 unit
  16. OMEGA 3                            /01334101/ [Concomitant]
     Dosage: 1200 mg, UNK
  17. CALCIUM 600 + D [Concomitant]
     Dosage: UNK
  18. METHOTREXATE [Concomitant]

REACTIONS (2)
  - Cardiac disorder [Unknown]
  - Drug ineffective [Unknown]
